FAERS Safety Report 5279089-6 (Version None)
Quarter: 2007Q1

REPORT INFORMATION
  Report Type: 
  Country: None (occurrence: None)
  Receive Date: 20070327
  Receipt Date: 20070327
  Transmission Date: 20070707
  Serious: Yes (Hospitalization)
  Sender: FDA-Public Use
  Company Number: None

PATIENT
  Age: 75 Year
  Sex: Male
  Weight: 91.173 kg

DRUGS (3)
  1. WARFARIN SODIUM [Suspect]
     Indication: ATRIAL FIBRILLATION
     Dosage: 3 MG  DAILY  PO
     Route: 048
     Dates: start: 20060301, end: 20070326
  2. MOXIFLOXACIN HCL [Suspect]
     Indication: BRONCHITIS
     Dosage: 400 MG  DAILY  PO
     Route: 048
     Dates: start: 20070307, end: 20070314
  3. MOXIFLOXACIN HCL [Suspect]
     Indication: CHRONIC OBSTRUCTIVE PULMONARY DISEASE
     Dosage: 400 MG  DAILY  PO
     Route: 048
     Dates: start: 20070307, end: 20070314

REACTIONS (5)
  - CONTUSION [None]
  - DRUG TOXICITY [None]
  - HAEMATOMA [None]
  - NECROSIS [None]
  - SWELLING [None]
